FAERS Safety Report 13500252 (Version 1)
Quarter: 2017Q2

REPORT INFORMATION
  Report Type: Spontaneous
  Country: NO (occurrence: NO)
  Receive Date: 20170501
  Receipt Date: 20170501
  Transmission Date: 20170830
  Serious: Yes (Other)
  Sender: FDA-Public Use
  Company Number: NO-CORDEN PHARMA LATINA S.P.A.-NO-2017COR000115

PATIENT
  Sex: Male

DRUGS (4)
  1. CARMUSTINE [Suspect]
     Active Substance: CARMUSTINE
     Indication: PROPHYLAXIS AGAINST TRANSPLANT REJECTION
     Dosage: UNK
     Dates: start: 201212
  2. CYTARABINE. [Suspect]
     Active Substance: CYTARABINE
     Indication: PROPHYLAXIS AGAINST TRANSPLANT REJECTION
     Dosage: UNK
     Dates: start: 201212
  3. ETOPOSIDE. [Suspect]
     Active Substance: ETOPOSIDE
     Indication: PROPHYLAXIS AGAINST TRANSPLANT REJECTION
     Dosage: UNK
     Dates: start: 201212
  4. MELPHALAN. [Suspect]
     Active Substance: MELPHALAN
     Indication: PROPHYLAXIS AGAINST TRANSPLANT REJECTION
     Dosage: UNK
     Dates: start: 201212

REACTIONS (4)
  - Expanded disability status scale score increased [Not Recovered/Not Resolved]
  - Chronic inflammatory demyelinating polyradiculoneuropathy [Unknown]
  - Sepsis [Unknown]
  - Agranulocytosis [Recovered/Resolved]
